FAERS Safety Report 24177297 (Version 1)
Quarter: 2024Q3

REPORT INFORMATION
  Report Type: Report from Study
  Country: US (occurrence: US)
  Receive Date: 20240806
  Receipt Date: 20240806
  Transmission Date: 20241017
  Serious: No
  Sender: ROCHE
  Company Number: US-ROCHE-10000046182

PATIENT
  Age: 38 Year
  Sex: Female
  Weight: 86.63 kg

DRUGS (30)
  1. OCREVUS [Suspect]
     Active Substance: OCRELIZUMAB
     Indication: Relapsing-remitting multiple sclerosis
     Dosage: FIRST DOSE WAS AT 0800
     Route: 042
     Dates: start: 20190717
  2. COVID-19 VACCINE NOS [Suspect]
     Active Substance: COVID-19 VACCINE
     Indication: COVID-19 prophylaxis
     Route: 030
  3. COVID-19 VACCINE NOS [Suspect]
     Active Substance: COVID-19 VACCINE
     Route: 030
     Dates: start: 20221002
  4. COVID-19 VACCINE NOS [Suspect]
     Active Substance: COVID-19 VACCINE
     Route: 030
     Dates: start: 20220701
  5. COVID-19 VACCINE NOS [Suspect]
     Active Substance: COVID-19 VACCINE
     Route: 030
     Dates: start: 20210823
  6. COVID-19 VACCINE NOS [Suspect]
     Active Substance: COVID-19 VACCINE
     Route: 030
     Dates: start: 20210304
  7. COVID-19 VACCINE NOS [Suspect]
     Active Substance: COVID-19 VACCINE
     Route: 030
     Dates: start: 20210211
  8. ALBUTEROL SULFATE [Concomitant]
     Active Substance: ALBUTEROL SULFATE
  9. ARMODAFINIL [Concomitant]
     Active Substance: ARMODAFINIL
  10. BUPROPION HYDROCHLORIDE [Concomitant]
     Active Substance: BUPROPION HYDROCHLORIDE
  11. ZYRTEC [Concomitant]
     Active Substance: CETIRIZINE HYDROCHLORIDE
  12. CLOBETASOL [Concomitant]
     Active Substance: CLOBETASOL
  13. ESCITALOPRAM [Concomitant]
     Active Substance: ESCITALOPRAM OXALATE
  14. FLUTICASONE PROPIONATE [Concomitant]
     Active Substance: FLUTICASONE PROPIONATE
  15. LITHIUM CARBONATE [Concomitant]
     Active Substance: LITHIUM CARBONATE
  16. LORAZEPAM [Concomitant]
     Active Substance: LORAZEPAM
  17. MICONAZOLE NITRATE [Concomitant]
     Active Substance: MICONAZOLE NITRATE
  18. DELTASONE [Concomitant]
     Active Substance: PREDNISONE
  19. PREGABALIN [Concomitant]
     Active Substance: PREGABALIN
  20. ZALEPLON [Concomitant]
     Active Substance: ZALEPLON
  21. KENALOG [Concomitant]
     Active Substance: TRIAMCINOLONE ACETONIDE
  22. SOLU-MEDROL [Concomitant]
     Active Substance: METHYLPREDNISOLONE SODIUM SUCCINATE
  23. ZOFRAN [Concomitant]
     Active Substance: ONDANSETRON HYDROCHLORIDE
  24. PAXLOVID [Concomitant]
     Active Substance: NIRMATRELVIR\RITONAVIR
     Route: 048
     Dates: start: 20240713, end: 20240718
  25. AZITHROMYCIN [Concomitant]
     Active Substance: AZITHROMYCIN
     Dosage: TWO TABLETS BY MOUTH ON DAY?ONE AND ONE TABLET DAILY DAYS 2 TO 5
     Dates: start: 20240723, end: 20240728
  26. LIDOCAINE [Concomitant]
     Active Substance: LIDOCAINE
     Dosage: 5 ML - 10 ML
  27. METHYLPREDNISOLONE [Concomitant]
     Active Substance: METHYLPREDNISOLONE
  28. MUCINEX D [Concomitant]
     Active Substance: GUAIFENESIN\PSEUDOEPHEDRINE HYDROCHLORIDE
  29. TECFIDERA [Concomitant]
     Active Substance: DIMETHYL FUMARATE
  30. COPAXONE [Concomitant]
     Active Substance: GLATIRAMER ACETATE

REACTIONS (3)
  - COVID-19 [Recovering/Resolving]
  - Pain in extremity [Unknown]
  - Off label use [Unknown]

NARRATIVE: CASE EVENT DATE: 20190717
